FAERS Safety Report 10701548 (Version 1)
Quarter: 2015Q1

REPORT INFORMATION
  Report Type: Spontaneous
  Country: US (occurrence: US)
  Receive Date: 20150109
  Receipt Date: 20150109
  Transmission Date: 20150721
  Serious: No
  Sender: FDA-Public Use
  Company Number: US-BRISTOL-MYERS SQUIBB COMPANY-BMS-2014-001348

PATIENT
  Sex: Male

DRUGS (2)
  1. BARACLUDE [Suspect]
     Active Substance: ENTECAVIR
     Indication: HEPATITIS B
     Dosage: 1 MG, UNK
     Route: 065
  2. BARACLUDE [Suspect]
     Active Substance: ENTECAVIR
     Dosage: 0.5 MG, UNK
     Route: 065

REACTIONS (4)
  - Amnesia [Unknown]
  - Diarrhoea [Unknown]
  - Liver function test abnormal [Unknown]
  - Urine analysis abnormal [Unknown]
